FAERS Safety Report 8818900 (Version 1)
Quarter: 2012Q4

REPORT INFORMATION
  Report Type: 
  Country: US (occurrence: US)
  Receive Date: 20121001
  Receipt Date: 20121001
  Transmission Date: 20130627
  Serious: Yes (Other)
  Sender: FDA-Public Use
  Company Number: PHHY2012US083543

PATIENT
  Age: 63 Year
  Sex: Male

DRUGS (5)
  1. IMATINIB [Suspect]
     Indication: CHRONIC MYELOID LEUKAEMIA
     Dosage: 600 mg, UNK
  2. IMATINIB [Suspect]
     Dosage: 400 mg, daily
  3. DASATINIB [Suspect]
     Dosage: 100 mg, daily
  4. HYDROXYUREA [Suspect]
     Dosage: 1.5 g, UNK
  5. PEGYLATED INTERFERON ALFA-2A [Suspect]
     Dosage: 180 mcg

REACTIONS (2)
  - Splenomegaly [Unknown]
  - Pleural effusion [Unknown]
